FAERS Safety Report 9465082 (Version 1)
Quarter: 2013Q3

REPORT INFORMATION
  Report Type: Spontaneous
  Country: PT (occurrence: PT)
  Receive Date: 20130819
  Receipt Date: 20130819
  Transmission Date: 20140515
  Serious: Yes (Hospitalization, Other)
  Sender: FDA-Public Use
  Company Number: PT-ABBOTT-13P-130-1132474-00

PATIENT
  Age: 30 Year
  Sex: Female

DRUGS (2)
  1. HUMIRA [Suspect]
     Indication: CROHN^S DISEASE
     Dates: start: 20070709
  2. IMURAN [Suspect]
     Indication: CROHN^S DISEASE
     Dates: start: 20050301

REACTIONS (2)
  - Hepatitis [Recovered/Resolved with Sequelae]
  - Disseminated cytomegaloviral infection [Recovered/Resolved with Sequelae]
